FAERS Safety Report 4865303-5 (Version None)
Quarter: 2005Q4

REPORT INFORMATION
  Report Type: 
  Country: None (occurrence: None)
  Receive Date: 20051223
  Receipt Date: 20051122
  Transmission Date: 20060501
  Serious: Yes (Death)
  Sender: FDA-Public Use
  Company Number: JP-AVENTIS-200520264GDDC

PATIENT
  Age: 77 Year
  Sex: Male
  Weight: 60 kg

DRUGS (10)
  1. RIFADIN [Suspect]
     Indication: DISSEMINATED TUBERCULOSIS
     Route: 048
     Dates: start: 20030604, end: 20040228
  2. ISONIAZID [Suspect]
     Indication: DISSEMINATED TUBERCULOSIS
  3. EBUTOL [Suspect]
     Indication: DISSEMINATED TUBERCULOSIS
     Route: 048
     Dates: start: 20030604, end: 20040228
  4. APTECIN [Suspect]
     Indication: DISSEMINATED TUBERCULOSIS
     Route: 048
     Dates: start: 20030604, end: 20040228
  5. GATIFLO [Suspect]
     Indication: DISSEMINATED TUBERCULOSIS
     Route: 048
     Dates: start: 20030707, end: 20031024
  6. BLOPRESS [Suspect]
     Indication: HYPERTENSION
     Route: 048
     Dates: start: 20030701, end: 20041116
  7. TENORMIN [Suspect]
     Indication: HYPERTENSION
     Route: 048
     Dates: start: 20030701, end: 20030813
  8. GASTER [Suspect]
     Indication: GASTRIC ULCER
     Route: 048
     Dates: start: 20030701, end: 20030813
  9. FLIVAS [Suspect]
     Indication: BENIGN PROSTATIC HYPERPLASIA
     Route: 048
     Dates: start: 20030701, end: 20041020
  10. CRAVIT [Concomitant]
     Indication: ANTIBIOTIC PROPHYLAXIS
     Route: 048

REACTIONS (4)
  - ENDOCARDITIS [None]
  - EOSINOPHILIA [None]
  - HEPATORENAL SYNDROME [None]
  - SUDDEN DEATH [None]
